FAERS Safety Report 6824288-2 (Version None)
Quarter: 2010Q3

REPORT INFORMATION
  Report Type: 
  Country: None (occurrence: None)
  Receive Date: 20100708
  Receipt Date: 20070112
  Transmission Date: 20110219
  Serious: No
  Sender: FDA-Public Use
  Company Number: US-PFIZER INC-2006127281

PATIENT
  Sex: Female
  Weight: 79.38 kg

DRUGS (7)
  1. CHANTIX [Suspect]
     Indication: SMOKING CESSATION THERAPY
     Dates: start: 20061014, end: 20061020
  2. LOTREL [Concomitant]
     Dosage: 1 EVERY NA DAYS
  3. ATENOLOL [Concomitant]
  4. PLAVIX [Concomitant]
     Dosage: 1 EVERY NA DAYS
  5. ACETYLSALICYLIC ACID [Concomitant]
  6. LOVASTATIN [Concomitant]
     Dosage: 1 EVERY NA DAYS
  7. MAXZIDE [Concomitant]

REACTIONS (5)
  - DRUG INEFFECTIVE [None]
  - DYSPEPSIA [None]
  - MALAISE [None]
  - NAUSEA [None]
  - NERVOUSNESS [None]
